FAERS Safety Report 6275688-3 (Version None)
Quarter: 2009Q3

REPORT INFORMATION
  Report Type: 
  Country: None (occurrence: None)
  Receive Date: 20090721
  Receipt Date: 20090710
  Transmission Date: 20100115
  Serious: Yes (Hospitalization, Other)
  Sender: FDA-Public Use
  Company Number: FR-SANOFI-SYNTHELABO-A02200901799

PATIENT
  Age: 51 Year
  Sex: Female

DRUGS (2)
  1. OXALIPLATIN [Suspect]
     Indication: COLON CANCER METASTATIC
     Dosage: UNK
     Route: 042
  2. CETUXIMAB [Suspect]
     Dosage: UNK
     Route: 042

REACTIONS (7)
  - BODY TEMPERATURE INCREASED [None]
  - FISTULA [None]
  - HAEMOGLOBINAEMIA [None]
  - HEART RATE INCREASED [None]
  - INFECTION [None]
  - JAUNDICE [None]
  - TUMOUR NECROSIS [None]
